FAERS Safety Report 9914228 (Version 1)
Quarter: 2014Q1

REPORT INFORMATION
  Report Type: Spontaneous
  Country: US (occurrence: None)
  Receive Date: 20140218
  Receipt Date: 20140218
  Transmission Date: 20141002
  Serious: Yes (Hospitalization)
  Sender: FDA-Public Use
  Company Number: CC1402013

PATIENT
  Age: 34 Year
  Sex: Male
  Weight: 95.26 kg

DRUGS (6)
  1. TUSSIN CF MAX 296 [Suspect]
     Indication: COUGH
     Dosage: 10ML/ TWICE A DAY
     Dates: start: 20140203, end: 20140205
  2. TUSSIN CF MAX 296 [Suspect]
     Indication: NASOPHARYNGITIS
     Dosage: 10ML/ TWICE A DAY
     Dates: start: 20140203, end: 20140205
  3. TUSSIN CF MAX 296 [Suspect]
     Indication: INFLUENZA
     Dosage: 10ML/ TWICE A DAY
     Dates: start: 20140203, end: 20140205
  4. GUAIFENESIN\PHENYLEPHRINE HCL [Suspect]
  5. LAMOTRIGINE [Concomitant]
  6. ADDERALL [Concomitant]

REACTIONS (4)
  - Rash generalised [None]
  - Dehydration [None]
  - Liquid product physical issue [None]
  - Malaise [None]
